FAERS Safety Report 10369409 (Version 2)
Quarter: 2014Q3

REPORT INFORMATION
  Report Type: Report from Study
  Country: KR (occurrence: KR)
  Receive Date: 20140807
  Receipt Date: 20140807
  Transmission Date: 20150326
  Serious: Yes (Death, Hospitalization)
  Sender: FDA-Public Use
  Company Number: KR-TAKEDA-2014JNJ004820

PATIENT

DRUGS (7)
  1. VELCADE [Suspect]
     Active Substance: BORTEZOMIB
     Indication: PLASMA CELL MYELOMA
     Dosage: 1.3 MG/M2, UNK
     Route: 042
     Dates: start: 20120315, end: 20120325
  2. CLAFORAN                           /00497602/ [Concomitant]
     Indication: DIARRHOEA
     Dosage: 2000 MG, UNK
     Route: 042
     Dates: start: 20120401, end: 20120404
  3. MELPHALAN [Suspect]
     Active Substance: MELPHALAN
     Indication: PLASMA CELL MYELOMA
     Dosage: 5.2 MG/M2, UNK
     Route: 048
     Dates: start: 20120315, end: 20120318
  4. PREDNISOLONE. [Suspect]
     Active Substance: PREDNISOLONE
     Indication: PLASMA CELL MYELOMA
     Dosage: 60 MG/M2, UNK
     Route: 048
     Dates: start: 20120315, end: 20120318
  5. FLAGYL [Concomitant]
     Active Substance: METRONIDAZOLE\METRONIDAZOLE HYDROCHLORIDE
     Indication: DIARRHOEA
     Dosage: 500 MG, UNK
     Route: 042
     Dates: start: 20120401, end: 20120404
  6. GASTER [Concomitant]
     Active Substance: FAMOTIDINE
     Indication: PROPHYLAXIS
     Dosage: 20 MG, UNK
     Route: 042
     Dates: start: 20120401, end: 20120404
  7. MUCOPECT [Concomitant]
     Indication: PROPHYLAXIS
     Dosage: 15 MG, UNK
     Route: 042
     Dates: start: 20120401, end: 20120404

REACTIONS (6)
  - Death [Fatal]
  - Somnolence [Not Recovered/Not Resolved]
  - Abdominal distension [Recovered/Resolved]
  - Infectious colitis [Recovered/Resolved]
  - Pollakiuria [Not Recovered/Not Resolved]
  - Pyrexia [Recovered/Resolved]

NARRATIVE: CASE EVENT DATE: 20120322
